FAERS Safety Report 25256086 (Version 1)
Quarter: 2025Q2

REPORT INFORMATION
  Report Type: Spontaneous
  Country: GB (occurrence: GB)
  Receive Date: 20250430
  Receipt Date: 20250430
  Transmission Date: 20250716
  Serious: Yes (Other)
  Sender: TORRENT PHARMA INC.
  Company Number: None

PATIENT
  Age: 54 Year
  Sex: Female
  Weight: 57 kg

DRUGS (1)
  1. ESCITALOPRAM [Suspect]
     Active Substance: ESCITALOPRAM OXALATE
     Indication: Anxiety
     Dosage: 10 MG MORNINGS
     Route: 065
     Dates: start: 20250415

REACTIONS (3)
  - Deafness [Not Recovered/Not Resolved]
  - Tinnitus [Unknown]
  - Ear discomfort [Unknown]

NARRATIVE: CASE EVENT DATE: 20250424
